FAERS Safety Report 6786776-7 (Version None)
Quarter: 2010Q2

REPORT INFORMATION
  Report Type: 
  Country: None (occurrence: None)
  Receive Date: 20100623
  Receipt Date: 20100514
  Transmission Date: 20101027
  Serious: No
  Sender: FDA-Public Use
  Company Number: US-BAXTER-2010BH004067

PATIENT
  Age: 51 Year
  Sex: Female
  Weight: 108 kg

DRUGS (17)
  1. HEPARIN SODIUM [Suspect]
     Indication: HAEMODIALYSIS
     Route: 010
     Dates: start: 20030101, end: 20030101
  2. HEPARIN SODIUM [Suspect]
     Route: 010
     Dates: start: 20030101, end: 20030101
  3. HEPARIN SODIUM [Suspect]
     Route: 010
     Dates: start: 20030415, end: 20030415
  4. HEPARIN SODIUM [Suspect]
     Route: 010
     Dates: start: 20030415, end: 20030415
  5. HEPARIN SODIUM [Suspect]
     Route: 010
     Dates: start: 20030417, end: 20030417
  6. HEPARIN SODIUM [Suspect]
     Route: 010
     Dates: start: 20030417, end: 20030417
  7. HEPARIN SODIUM [Suspect]
     Route: 010
     Dates: start: 20040110, end: 20040110
  8. HEPARIN SODIUM [Suspect]
     Route: 010
     Dates: start: 20040110, end: 20040110
  9. HEPARIN SODIUM [Suspect]
     Route: 010
     Dates: start: 20051115, end: 20051115
  10. HEPARIN SODIUM [Suspect]
     Route: 010
     Dates: start: 20051115, end: 20051115
  11. HEPARIN SODIUM [Suspect]
     Route: 010
     Dates: start: 20060102, end: 20060102
  12. HEPARIN SODIUM [Suspect]
     Route: 010
     Dates: start: 20060102, end: 20060102
  13. HEPARIN SODIUM [Suspect]
     Route: 010
     Dates: start: 20090625, end: 20090625
  14. HEPARIN SODIUM [Suspect]
     Route: 010
     Dates: start: 20090625, end: 20090625
  15. EPOGEN [Concomitant]
     Indication: DRUG USE FOR UNKNOWN INDICATION
     Route: 042
  16. ZEMPLAR [Concomitant]
     Indication: DRUG USE FOR UNKNOWN INDICATION
     Route: 042
  17. HECTOROL [Concomitant]
     Indication: DRUG USE FOR UNKNOWN INDICATION
     Route: 042

REACTIONS (2)
  - PRURITUS GENERALISED [None]
  - SKIN BURNING SENSATION [None]
